FAERS Safety Report 6785164-7 (Version None)
Quarter: 2010Q2

REPORT INFORMATION
  Report Type: 
  Country: None (occurrence: None)
  Receive Date: 20100618
  Receipt Date: 20100604
  Transmission Date: 20101027
  Serious: Yes (Death, Life-Threatening)
  Sender: FDA-Public Use
  Company Number: IDA-00357

PATIENT
  Age: 39 Year
  Sex: Male

DRUGS (1)
  1. PROPRANOLOL [Suspect]
     Indication: SUPRAVENTRICULAR TACHYCARDIA
     Dosage: 2 MG/DOSE TEXT; 5 MG INFUSED AT RATE OF 0.16 MG/MIN OVER 30 MINUTES; INTRAVENOUS
     Route: 042

REACTIONS (6)
  - ANURIA [None]
  - CARDIO-RESPIRATORY ARREST [None]
  - CARDIOGENIC SHOCK [None]
  - COMA [None]
  - MULTI-ORGAN FAILURE [None]
  - SUPRAVENTRICULAR TACHYCARDIA [None]
